FAERS Safety Report 7467407-X (Version None)
Quarter: 2011Q2

REPORT INFORMATION
  Report Type: 
  Country: None (occurrence: None)
  Receive Date: 20110509
  Receipt Date: 20101229
  Transmission Date: 20111010
  Serious: No
  Sender: FDA-Public Use
  Company Number: US-ALEXION-A201001684

PATIENT
  Sex: Female

DRUGS (8)
  1. MUCINEX [Concomitant]
     Indication: RHINORRHOEA
     Dosage: 600 MG, BID
     Route: 048
  2. BENZONATATE [Concomitant]
     Indication: COUGH
     Dosage: UNK
     Route: 048
  3. TYLENOL (CAPLET) [Concomitant]
     Dosage: 500 MG, QD
     Route: 048
  4. CASCARA                            /00143201/ [Concomitant]
     Dosage: 450 MG, QD
     Route: 048
  5. CLONAZEPAM [Concomitant]
     Indication: ANXIETY
     Dosage: 5 MG, QD
     Route: 048
  6. SOLIRIS [Suspect]
     Indication: PAROXYSMAL NOCTURNAL HAEMOGLOBINURIA
     Dosage: 600 MG, QW X 4 WKS
     Route: 042
     Dates: start: 20080901, end: 20080101
  7. SOLIRIS [Suspect]
     Dosage: 900 MG, Q2W
     Route: 042
     Dates: start: 20080101
  8. PLONOZEPAM [Concomitant]
     Indication: ANXIETY
     Dosage: UNK

REACTIONS (2)
  - DYSPHAGIA [None]
  - COUGH [None]
